FAERS Safety Report 10689647 (Version 1)
Quarter: 2015Q1

REPORT INFORMATION
  Report Type: Spontaneous
  Country: US (occurrence: None)
  Receive Date: 20150102
  Receipt Date: 20150102
  Transmission Date: 20150720
  Serious: Yes (Hospitalization)
  Sender: FDA-Public Use
  Company Number: None

PATIENT
  Age: 55 Year
  Sex: Male
  Weight: 86.8 kg

DRUGS (2)
  1. LISINOPRIL. [Suspect]
     Active Substance: LISINOPRIL
     Indication: HYPERTENSION
     Route: 048
     Dates: start: 20131018, end: 20140825
  2. IBUPROFEN. [Suspect]
     Active Substance: IBUPROFEN
     Dosage: UD
     Route: 048
     Dates: start: 20140822, end: 20140827

REACTIONS (1)
  - Angioedema [None]

NARRATIVE: CASE EVENT DATE: 20140825
